FAERS Safety Report 10926390 (Version 1)
Quarter: 2015Q1

REPORT INFORMATION
  Report Type: Spontaneous
  Country: US (occurrence: None)
  Receive Date: 20150128
  Receipt Date: 20150128
  Transmission Date: 20150721
  Serious: No
  Sender: FDA-Public Use
  Company Number: 2014TUS014460

PATIENT
  Age: 32 Year
  Sex: Female

DRUGS (2)
  1. MULTIPLE UNKNOWN MEDICATIONS (ALL OTHER THERAPEUTIC PRODUCTS) [Concomitant]
  2. BRINTELLIX [Suspect]
     Active Substance: VORTIOXETINE HYDROBROMIDE
     Indication: PRODUCT USED FOR UNKNOWN INDICATION
     Dosage: 10 MG (SAMPLES) HALF TABLET, QD, ORAL
     Route: 048

REACTIONS (2)
  - Heart rate increased [None]
  - Blood pressure increased [None]
